FAERS Safety Report 23984912 (Version 1)
Quarter: 2024Q2

REPORT INFORMATION
  Report Type: Spontaneous
  Country: US (occurrence: US)
  Receive Date: 20240618
  Receipt Date: 20240618
  Transmission Date: 20240716
  Serious: No
  Sender: FDA-Public Use
  Company Number: US-TEVA-VS-3207838

PATIENT
  Age: 76 Year
  Sex: Male

DRUGS (1)
  1. TERIPARATIDE [Suspect]
     Active Substance: TERIPARATIDE
     Indication: Product used for unknown indication
     Dosage: DOSE:  600MCG/2.4ML
     Route: 065
     Dates: start: 202401

REACTIONS (3)
  - Lymphadenopathy [Unknown]
  - Headache [Unknown]
  - Incorrect dose administered [Unknown]
